FAERS Safety Report 17131382 (Version 1)
Quarter: 2019Q4

REPORT INFORMATION
  Report Type: Spontaneous
  Country: US (occurrence: US)
  Receive Date: 20191209
  Receipt Date: 20191209
  Transmission Date: 20200122
  Serious: No
  Sender: FDA-Public Use
  Company Number: US-WELLSTAT THERAPEUTICS CORPORATION-2077650

PATIENT
  Sex: Male

DRUGS (2)
  1. FLUOROURACIL. [Concomitant]
     Active Substance: FLUOROURACIL
  2. VISTOGARD [Suspect]
     Active Substance: URIDINE TRIACETATE
     Indication: CHEMOTHERAPY TOXICITY ATTENUATION
     Route: 050
     Dates: start: 20190817

REACTIONS (1)
  - Complication associated with device [Unknown]

NARRATIVE: CASE EVENT DATE: 20190818
